FAERS Safety Report 5106428-9 (Version None)
Quarter: 2006Q3

REPORT INFORMATION
  Report Type: 
  Country: None (occurrence: None)
  Receive Date: 20060918
  Receipt Date: 20060911
  Transmission Date: 20061208
  Serious: Yes (Hospitalization)
  Sender: FDA-Public Use
  Company Number: NO-ROCHE-462885

PATIENT
  Age: 57 Year
  Sex: Male

DRUGS (6)
  1. BONIVA [Suspect]
     Indication: OSTEOPOROSIS
     Route: 048
     Dates: start: 20060815
  2. MESASAL [Concomitant]
     Dosage: LONG TERM USE
  3. PROGRAF [Concomitant]
     Dosage: LONG TERM USE
  4. SOMAC [Concomitant]
     Dosage: LONG TERM USE
  5. LEVAXIN [Concomitant]
     Dosage: LONG TERM USE
  6. ALBYL-E [Concomitant]

REACTIONS (3)
  - ALANINE AMINOTRANSFERASE INCREASED [None]
  - ASPARTATE AMINOTRANSFERASE INCREASED [None]
  - HEPATOCELLULAR DAMAGE [None]
